FAERS Safety Report 9405238 (Version 1)
Quarter: 2013Q3

REPORT INFORMATION
  Report Type: Spontaneous
  Country: GB (occurrence: GB)
  Receive Date: 20130717
  Receipt Date: 20130717
  Transmission Date: 20140515
  Serious: Yes (Hospitalization)
  Sender: FDA-Public Use
  Company Number: GB-BAXTER-2013BAX026741

PATIENT
  Age: 74 Year
  Sex: 0

DRUGS (3)
  1. METRONIDAZOLE 500 MG / 100 ML INTRAVENOUS INFUSION [Suspect]
     Indication: ASPIRATION
     Route: 041
     Dates: start: 20110525, end: 20110527
  2. CEFTRIAXONE [Suspect]
     Indication: MENINGITIS MENINGOCOCCAL
     Route: 041
     Dates: start: 20110525, end: 20110603
  3. FLUCLOXACILLIN [Suspect]
     Indication: PRODUCT USED FOR UNKNOWN INDICATION
     Route: 048
     Dates: start: 20090601, end: 20090608

REACTIONS (2)
  - Clostridium difficile infection [Recovered/Resolved]
  - Diarrhoea [Unknown]
